FAERS Safety Report 6535038-1 (Version None)
Quarter: 2010Q1

REPORT INFORMATION
  Report Type: 
  Country: None (occurrence: None)
  Receive Date: 20100112
  Receipt Date: 20100105
  Transmission Date: 20100710
  Serious: Yes (Other)
  Sender: FDA-Public Use
  Company Number: SE-GENENTECH-296607

PATIENT
  Sex: Male

DRUGS (3)
  1. MABTHERA [Suspect]
     Indication: DRUG USE FOR UNKNOWN INDICATION
     Dosage: DRUG REPORTED AS MABTHERA CONC FOR SOL INF.
     Route: 065
  2. DELTISON [Suspect]
     Indication: DRUG USE FOR UNKNOWN INDICATION
     Dosage: DRUG REPORTED AS DELTISON TABL.
     Route: 065
  3. CYKLOFOSFAMID [Suspect]
     Indication: DRUG USE FOR UNKNOWN INDICATION
     Dosage: DRUG REPORTED AS CYKLOFOSFAMID ORION.
     Route: 065

REACTIONS (1)
  - POLYNEUROPATHY [None]
